FAERS Safety Report 6217122-5 (Version None)
Quarter: 2009Q2

REPORT INFORMATION
  Report Type: 
  Country: None (occurrence: None)
  Receive Date: 20090606
  Receipt Date: 20090525
  Transmission Date: 20091009
  Serious: Yes (Other)
  Sender: FDA-Public Use
  Company Number: CN-PFIZER INC-2009217869

PATIENT
  Age: 38 Year

DRUGS (5)
  1. SULPERAZON [Suspect]
     Indication: LUNG INFECTION
     Dosage: 2 G, 2X/DAY
     Route: 042
     Dates: start: 20090523, end: 20090525
  2. CEFOTAXIME SODIUM [Concomitant]
     Dates: start: 20090501, end: 20090501
  3. ESSENTIALE [Concomitant]
  4. VITAMIN K [Concomitant]
     Dosage: UNK
  5. DIURETICS [Concomitant]
     Dosage: UNK

REACTIONS (2)
  - COMA HEPATIC [None]
  - HEPATORENAL SYNDROME [None]
